FAERS Safety Report 10097451 (Version 1)
Quarter: 2014Q2

REPORT INFORMATION
  Report Type: Spontaneous
  Country: US (occurrence: US)
  Receive Date: 20140423
  Receipt Date: 20140423
  Transmission Date: 20141212
  Serious: No
  Sender: FDA-Public Use
  Company Number: US-009507513-1404USA000930

PATIENT
  Sex: 0

DRUGS (1)
  1. CLARITIN CHEWABLE TABLETS [Suspect]
     Indication: SEASONAL ALLERGY
     Dosage: 2 DF, UNK
     Route: 048

REACTIONS (3)
  - Lacrimation increased [Unknown]
  - Nasal congestion [Unknown]
  - Drug effect incomplete [Unknown]
